FAERS Safety Report 4757128-6 (Version None)
Quarter: 2005Q3

REPORT INFORMATION
  Report Type: 
  Country: None (occurrence: None)
  Receive Date: 20050831
  Receipt Date: 20050824
  Transmission Date: 20060218
  Serious: Yes (Other)
  Sender: FDA-Public Use
  Company Number: CA-JNJFOC-20050805692

PATIENT
  Age: 25 Year
  Sex: Female

DRUGS (1)
  1. REMICADE [Suspect]
     Indication: DRUG USE FOR UNKNOWN INDICATION
     Route: 042

REACTIONS (4)
  - CHEST PAIN [None]
  - DYSPNOEA [None]
  - HYPOXIA [None]
  - NAUSEA [None]
